FAERS Safety Report 4389560-7 (Version None)
Quarter: 2004Q2

REPORT INFORMATION
  Report Type: 
  Country: None (occurrence: None)
  Receive Date: 20040629
  Receipt Date: 20040421
  Transmission Date: 20050107
  Serious: Yes (Other)
  Sender: FDA-Public Use
  Company Number: US-JNJFOC-20040401403

PATIENT
  Age: 62 Year
  Sex: Male

DRUGS (8)
  1. DURAGESIC [Suspect]
     Indication: PAIN
     Dosage: SEE IMAGE
     Route: 062
     Dates: start: 20031201, end: 20040205
  2. DURAGESIC [Suspect]
     Indication: PAIN
     Dosage: SEE IMAGE
     Route: 062
     Dates: start: 20040205, end: 20040403
  3. PERCOCET (TABLETS) OXYCOCET [Concomitant]
  4. ADVAIR (SERETIDE MITE) [Concomitant]
  5. ZYVOX [Concomitant]
  6. AMARYL [Concomitant]
  7. DILTIAZEM [Concomitant]
  8. MINOCYCLINE HCL [Concomitant]

REACTIONS (3)
  - COMA [None]
  - SEDATION [None]
  - SOMNOLENCE [None]
